FAERS Safety Report 25937951 (Version 1)
Quarter: 2025Q4

REPORT INFORMATION
  Report Type: Spontaneous
  Country: US (occurrence: US)
  Receive Date: 20251018
  Receipt Date: 20251018
  Transmission Date: 20260118
  Serious: No
  Sender: SANOFI AVENTIS
  Company Number: US-SA-2025SA310078

PATIENT
  Age: 35 Year
  Sex: Female

DRUGS (1)
  1. DUPIXENT [Suspect]
     Active Substance: DUPILUMAB
     Indication: Chronic spontaneous urticaria
     Dosage: 300 MG, QOW
     Route: 058
     Dates: start: 202508

REACTIONS (5)
  - Pruritus [Recovered/Resolved]
  - Erythema [Recovered/Resolved]
  - Chronic spontaneous urticaria [Recovering/Resolving]
  - Condition aggravated [Recovering/Resolving]
  - Blister [Recovering/Resolving]

NARRATIVE: CASE EVENT DATE: 20250101
